FAERS Safety Report 13066843 (Version 2)
Quarter: 2017Q4

REPORT INFORMATION
  Report Type: Spontaneous
  Country: SI (occurrence: SI)
  Receive Date: 20161227
  Receipt Date: 20171122
  Transmission Date: 20180320
  Serious: Yes (Other)
  Sender: FDA-Public Use
  Company Number: SI-JNJFOC-20161221529

PATIENT
  Age: 84 Year
  Sex: Female

DRUGS (5)
  1. ASPIRIN PROTECT [Suspect]
     Active Substance: ASPIRIN
     Indication: ATRIAL FIBRILLATION
     Route: 065
     Dates: start: 20161010, end: 20161114
  2. XARELTO [Suspect]
     Active Substance: RIVAROXABAN
     Indication: ATRIAL FIBRILLATION
     Route: 048
     Dates: start: 201609, end: 2016
  3. XARELTO [Suspect]
     Active Substance: RIVAROXABAN
     Indication: ATRIAL FIBRILLATION
     Route: 048
  4. TIABENDAZOLE [Concomitant]
     Active Substance: THIABENDAZOLE
     Route: 065
  5. PERINDOPRIL [Concomitant]
     Active Substance: PERINDOPRIL
     Route: 065
     Dates: start: 1996

REACTIONS (11)
  - Joint range of motion decreased [Unknown]
  - Hypoaesthesia [Unknown]
  - Condition aggravated [Unknown]
  - Fatigue [Unknown]
  - Intentional dose omission [Unknown]
  - Myalgia [Unknown]
  - Gait disturbance [Unknown]
  - Myalgia [Unknown]
  - C-reactive protein increased [Unknown]
  - Malaise [Recovered/Resolved]
  - Red blood cell sedimentation rate increased [Unknown]

NARRATIVE: CASE EVENT DATE: 2016
